FAERS Safety Report 5574317-1 (Version None)
Quarter: 2007Q4

REPORT INFORMATION
  Report Type: 
  Country: None (occurrence: None)
  Receive Date: 20071221
  Receipt Date: 20071210
  Transmission Date: 20080405
  Serious: Yes (Death)
  Sender: FDA-Public Use
  Company Number: US021917

PATIENT
  Age: 59 Year
  Sex: Male

DRUGS (7)
  1. ACTIQ [Suspect]
     Indication: BREAKTHROUGH PAIN
     Dosage: 200 MG BUCCAL
     Route: 002
     Dates: start: 20040101
  2. ACTIQ [Suspect]
     Indication: CANCER PAIN
     Dosage: 200 MG BUCCAL
     Route: 002
     Dates: start: 20040101
  3. ACTIQ [Suspect]
     Indication: BREAKTHROUGH PAIN
     Dosage: 400 UG BUCCAL
     Route: 002
  4. ACTIQ [Suspect]
     Indication: CANCER PAIN
     Dosage: 400 UG BUCCAL
     Route: 002
  5. ACTIQ [Suspect]
     Indication: BREAKTHROUGH PAIN
     Dosage: 600 MG BUCCAL
     Route: 002
     Dates: end: 20061204
  6. ACTIQ [Suspect]
     Indication: CANCER PAIN
     Dosage: 600 MG BUCCAL
     Route: 002
     Dates: end: 20061204
  7. FENTANYL [Concomitant]

REACTIONS (1)
  - MALIGNANT NEOPLASM PROGRESSION [None]
